FAERS Safety Report 24085158 (Version 4)
Quarter: 2025Q1

REPORT INFORMATION
  Report Type: Spontaneous
  Country: US (occurrence: US)
  Receive Date: 20240712
  Receipt Date: 20250102
  Transmission Date: 20250409
  Serious: Yes (Hospitalization, Other)
  Sender: PFIZER
  Company Number: US-PFIZER INC-202200785315

PATIENT
  Age: 48 Year
  Sex: Female
  Weight: 75.3 kg

DRUGS (7)
  1. IBRANCE [Suspect]
     Active Substance: PALBOCICLIB
     Indication: Breast cancer female
     Route: 048
     Dates: end: 20240708
  2. IBRANCE [Suspect]
     Active Substance: PALBOCICLIB
     Indication: Breast cancer metastatic
  3. IBRANCE [Suspect]
     Active Substance: PALBOCICLIB
     Indication: Hormone receptor positive breast cancer
  4. IBRANCE [Suspect]
     Active Substance: PALBOCICLIB
     Indication: HER2 positive breast cancer
  5. LUPRON [Concomitant]
     Active Substance: LEUPROLIDE ACETATE
     Dates: start: 202110
  6. LETROZOLE [Concomitant]
     Active Substance: LETROZOLE
     Dates: start: 202110
  7. XGEVA [Concomitant]
     Active Substance: DENOSUMAB
     Dates: start: 202110

REACTIONS (17)
  - Hypertension [Unknown]
  - Blood glucose increased [Unknown]
  - Headache [Unknown]
  - Neck pain [Unknown]
  - Pain in extremity [Unknown]
  - Pulmonary embolism [Unknown]
  - Fall [Unknown]
  - Anxiety [Unknown]
  - Staphylococcal bacteraemia [Unknown]
  - Small intestinal obstruction [Unknown]
  - Joint effusion [Unknown]
  - Cardiac operation [Unknown]
  - Osteomyelitis [Unknown]
  - Cardiac valve vegetation [Unknown]
  - Pelvic venous thrombosis [Unknown]
  - Neoplasm progression [Unknown]
  - Anaemia [Unknown]

NARRATIVE: CASE EVENT DATE: 20220401
